FAERS Safety Report 5936808-0 (Version None)
Quarter: 2008Q4

REPORT INFORMATION
  Report Type: 
  Country: None (occurrence: None)
  Receive Date: 20081029
  Receipt Date: 20081016
  Transmission Date: 20090506
  Serious: Yes (Hospitalization)
  Sender: FDA-Public Use
  Company Number: 230583K08USA

PATIENT
  Age: 29 Year
  Sex: Female
  Weight: 77 kg

DRUGS (2)
  1. REBIF [Suspect]
     Indication: MULTIPLE SCLEROSIS
     Dosage: 44 MCG, 3 IN 1 WEEKS, SUBCUTANEOUS
     Route: 058
     Dates: start: 20080417, end: 20081016
  2. PROVIGIL (MODAFINAL) [Concomitant]

REACTIONS (11)
  - BALANCE DISORDER [None]
  - DIPLOPIA [None]
  - DIZZINESS [None]
  - DRUG INEFFECTIVE [None]
  - DRY EYE [None]
  - EYE PAIN [None]
  - FATIGUE [None]
  - MULTIPLE SCLEROSIS [None]
  - NAUSEA [None]
  - VISION BLURRED [None]
  - VITH NERVE PARALYSIS [None]
